FAERS Safety Report 6334701-5 (Version None)
Quarter: 2009Q3

REPORT INFORMATION
  Report Type: 
  Country: None (occurrence: None)
  Receive Date: 20090831
  Receipt Date: 20090818
  Transmission Date: 20100115
  Serious: Yes (Disabling)
  Sender: FDA-Public Use
  Company Number: CA-PFIZER INC-2009257020

PATIENT
  Age: 53 Year

DRUGS (14)
  1. LYRICA [Suspect]
     Indication: FIBROMYALGIA
     Dosage: UNK
  2. PANTOLOC ^NYCOMED^ [Concomitant]
     Dosage: UNK
  3. PROGESTERONE [Concomitant]
     Dosage: UNK
  4. METFORMIN [Concomitant]
     Dosage: UNK
  5. BACLOFEN [Concomitant]
     Dosage: UNK
  6. MORPHINE [Concomitant]
     Dosage: UNK
  7. AMITRIPTYLINE [Concomitant]
     Dosage: UNK
  8. ZOPICLONE [Concomitant]
     Dosage: UNK
  9. SPIRONOLACTONE [Concomitant]
     Dosage: UNK
  10. RAMIPRIL [Concomitant]
     Dosage: UNK
  11. MELATONIN [Concomitant]
     Dosage: UNK
  12. LORAZEPAM [Concomitant]
     Dosage: UNK
  13. TRAZODONE [Concomitant]
     Dosage: UNK
  14. PLAVIX [Concomitant]
     Dosage: UNK

REACTIONS (3)
  - METAMORPHOPSIA [None]
  - PARALYSIS [None]
  - SPEECH DISORDER [None]
